FAERS Safety Report 5009538-X (Version None)
Quarter: 2006Q2

REPORT INFORMATION
  Report Type: 
  Country: None (occurrence: None)
  Receive Date: 20060522
  Receipt Date: 20060510
  Transmission Date: 20061013
  Serious: Yes (Death)
  Sender: FDA-Public Use
  Company Number: 163-C5013-06050325

PATIENT
  Age: 69 Year
  Sex: Male
  Weight: 113 kg

DRUGS (2)
  1. REVLIMID [Suspect]
     Indication: MULTIPLE MYELOMA
     Dosage: 15 MG, QD, ORAL
     Route: 048
     Dates: start: 20051215
  2. DEXAMETHASONE [Suspect]
     Indication: MULTIPLE MYELOMA
     Dosage: ORAL
     Route: 048
     Dates: start: 20051215

REACTIONS (2)
  - HYPOTENSION [None]
  - URINARY TRACT INFECTION [None]
